FAERS Safety Report 7303407-8 (Version None)
Quarter: 2011Q1

REPORT INFORMATION
  Report Type: 
  Country: None (occurrence: None)
  Receive Date: 20110221
  Receipt Date: 20110207
  Transmission Date: 20110831
  Serious: Yes (Hospitalization)
  Sender: FDA-Public Use
  Company Number: US-ELI_LILLY_AND_COMPANY-US201012001719

PATIENT
  Sex: Female

DRUGS (7)
  1. VITAMIN D [Concomitant]
  2. FORTEO [Suspect]
     Indication: OSTEOPOROSIS
     Dosage: 20 UG, DAILY (1/D)
     Dates: start: 20101101
  3. SYNTHROID [Concomitant]
  4. LOMOTIL [Concomitant]
     Indication: COLITIS ULCERATIVE
  5. FORTEO [Suspect]
     Dosage: 20 UG, DAILY (1/D)
  6. MULTIVITAMIN [Concomitant]
  7. CALCIUM [Concomitant]

REACTIONS (8)
  - FEMUR FRACTURE [None]
  - ASTHENIA [None]
  - HEART RATE INCREASED [None]
  - STRESS [None]
  - DIZZINESS [None]
  - MYALGIA [None]
  - ALOPECIA [None]
  - NAUSEA [None]
